FAERS Safety Report 10384873 (Version 1)
Quarter: 2014Q3

REPORT INFORMATION
  Report Type: Spontaneous
  Country: ES (occurrence: ES)
  Receive Date: 20140814
  Receipt Date: 20140814
  Transmission Date: 20150326
  Serious: Yes (Other)
  Sender: FDA-Public Use
  Company Number: ES-PFIZER INC-2014226219

PATIENT
  Age: 31 Year
  Sex: Female

DRUGS (2)
  1. YURELAX [Interacting]
     Active Substance: CYCLOBENZAPRINE HYDROCHLORIDE
     Indication: MUSCLE CONTRACTURE
     Dosage: 10 MG, 1X/DAY
     Route: 048
     Dates: start: 20140519, end: 20140529
  2. LOETTE [Suspect]
     Active Substance: ETHINYL ESTRADIOL\LEVONORGESTREL
     Indication: CONTRACEPTION
     Dosage: UNK
     Route: 048
     Dates: start: 20120703

REACTIONS (3)
  - Pregnancy on oral contraceptive [Unknown]
  - Drug ineffective [Unknown]
  - Drug interaction [Unknown]

NARRATIVE: CASE EVENT DATE: 20140714
